FAERS Safety Report 5325486-X (Version None)
Quarter: 2007Q2

REPORT INFORMATION
  Report Type: 
  Country: None (occurrence: None)
  Receive Date: 20070509
  Receipt Date: 20070427
  Transmission Date: 20071010
  Serious: Yes (Hospitalization)
  Sender: FDA-Public Use
  Company Number: 2007BI007043

PATIENT
  Age: 38 Year
  Sex: Female

DRUGS (10)
  1. AVONEX [Suspect]
     Indication: MULTIPLE SCLEROSIS
     Dosage: 30 UG;QW;IM
     Route: 030
     Dates: start: 20030929
  2. AVONEX [Suspect]
     Indication: MULTIPLE SCLEROSIS
     Dosage: IM
     Route: 030
     Dates: start: 20060608
  3. WELLBUTRIN [Concomitant]
  4. PREDNISONE TAB [Concomitant]
  5. METHOTREXATE [Concomitant]
  6. VESICARE [Concomitant]
  7. TRAMADOL HCL [Concomitant]
  8. LASIX [Concomitant]
  9. POTASSIUM ACETATE [Concomitant]
  10. BACLOFEN [Concomitant]

REACTIONS (2)
  - PHLEBITIS [None]
  - THROMBOSIS [None]
